FAERS Safety Report 5955844-1 (Version None)
Quarter: 2008Q4

REPORT INFORMATION
  Report Type: 
  Country: None (occurrence: None)
  Receive Date: 20081117
  Receipt Date: 20081107
  Transmission Date: 20090506
  Serious: Yes (Other)
  Sender: FDA-Public Use
  Company Number: FR-PFIZER INC-2008094634

PATIENT
  Sex: Female

DRUGS (2)
  1. GENOTONORM [Suspect]
  2. TRIPTORELIN [Concomitant]

REACTIONS (3)
  - EYE SWELLING [None]
  - LIP SWELLING [None]
  - OEDEMA PERIPHERAL [None]
